FAERS Safety Report 7794902-6 (Version None)
Quarter: 2011Q4

REPORT INFORMATION
  Report Type: 
  Country: None (occurrence: None)
  Receive Date: 20111004
  Receipt Date: 20110922
  Transmission Date: 20120403
  Serious: Yes (Other)
  Sender: FDA-Public Use
  Company Number: JP-CELGENEUS-087-CCAZA-11093610

PATIENT
  Age: 74 Year
  Sex: Male
  Weight: 55 kg

DRUGS (6)
  1. KYTRIL [Concomitant]
     Dosage: 3 MILLIGRAM
     Route: 048
  2. VFEND [Concomitant]
     Dosage: 300 MILLIGRAM
     Route: 048
  3. TRANSFUSION [Concomitant]
     Route: 065
  4. SULFAMETHOXAZOLE [Concomitant]
     Route: 048
  5. AZACITIDINE [Suspect]
     Dosage: 75 MILLIGRAM/SQ. METER
     Route: 041
     Dates: start: 20110411, end: 20110418
  6. MARZULENE-S [Concomitant]
     Dosage: 2 GRAM
     Route: 048

REACTIONS (1)
  - LIVER DISORDER [None]
